FAERS Safety Report 9064403 (Version 3)
Quarter: 2013Q1

REPORT INFORMATION
  Report Type: Report from Study
  Country: CA (occurrence: CA)
  Receive Date: 20130128
  Receipt Date: 20130304
  Transmission Date: 20140127
  Serious: Yes (Hospitalization, Other)
  Sender: FDA-Public Use
  Company Number: PHHY2013CA007162

PATIENT
  Sex: Female

DRUGS (5)
  1. CLOZARIL [Suspect]
     Indication: SCHIZOPHRENIA, PARANOID TYPE
     Dosage: 300 MG UNK
     Route: 048
     Dates: start: 20121127
  2. CLOZARIL [Suspect]
     Dosage: 250 MG UNK
     Route: 048
  3. OLANZAPINE [Concomitant]
     Dosage: 5 MG UNK
     Route: 048
  4. TRIMIPRAMINE [Concomitant]
     Dosage: 75 MG BID
     Route: 048
  5. RISPERDAL CONSTA [Concomitant]
     Dosage: 50 MG EVERY TWO WEEKS
     Route: 030

REACTIONS (5)
  - Diverticulitis [Unknown]
  - Diarrhoea [Unknown]
  - Clostridium difficile infection [Unknown]
  - Ileus [Unknown]
  - Constipation [Unknown]
